FAERS Safety Report 16808913 (Version 1)
Quarter: 2019Q3

REPORT INFORMATION
  Report Type: Spontaneous
  Country: NL (occurrence: NL)
  Receive Date: 20190916
  Receipt Date: 20190916
  Transmission Date: 20191005
  Serious: Yes (Hospitalization)
  Sender: FDA-Public Use
  Company Number: NL-SUN PHARMACEUTICAL INDUSTRIES LTD-2019RR-220709

PATIENT
  Age: 68 Year
  Sex: Female
  Weight: 77 kg

DRUGS (10)
  1. METOCLOPRAMIDE. [Concomitant]
     Active Substance: METOCLOPRAMIDE
     Indication: PRODUCT USED FOR UNKNOWN INDICATION
     Dosage: GEBRUIK 10 MG ORAAL 3 X PER DAG ZONODIG BIJ MISSELIJKHEID
     Route: 050
  2. HYDROCHLOORTHIAZIDE [Concomitant]
     Active Substance: HYDROCHLOROTHIAZIDE
     Indication: PRODUCT USED FOR UNKNOWN INDICATION
     Dosage: UNK
     Route: 065
  3. CAPECITABINE. [Concomitant]
     Active Substance: CAPECITABINE
     Indication: PRODUCT USED FOR UNKNOWN INDICATION
     Dosage: 1800 MILLIGRAM, 1DOSE/12HOUR
     Route: 050
  4. MAGNESIUMHYDROXIDE [Concomitant]
     Indication: PRODUCT USED FOR UNKNOWN INDICATION
     Dosage: GEBRUIK 724 MG ORAAL 3 X PER DAG ZO NODIG BIJ REFLUX
     Route: 050
  5. SIMVASTATINE [Concomitant]
     Active Substance: SIMVASTATIN
     Indication: PRODUCT USED FOR UNKNOWN INDICATION
     Dosage: UNK
     Route: 065
  6. BISOPROLOL [Concomitant]
     Active Substance: BISOPROLOL
     Indication: PRODUCT USED FOR UNKNOWN INDICATION
     Dosage: 10 MILLIGRAM, DAILY
     Route: 050
  7. OXALIPLATIN. [Suspect]
     Active Substance: OXALIPLATIN
     Indication: OESOPHAGEAL SQUAMOUS CELL CARCINOMA METASTATIC
     Dosage: 1 DOSAGE FORM, 1 DOSE/3 WEEKS
     Route: 050
     Dates: start: 20190702
  8. SIMVASTATINE [Concomitant]
     Active Substance: SIMVASTATIN
     Indication: PRODUCT USED FOR UNKNOWN INDICATION
     Dosage: 40 MILLIGRAM, DAILY
     Route: 050
  9. OMEPRAZOL [Concomitant]
     Active Substance: OMEPRAZOLE
     Indication: PRODUCT USED FOR UNKNOWN INDICATION
     Dosage: GEBRUIK 20 MG ORAAL 1 X PER DAG
     Route: 065
  10. METCOLPRAMIDE [Concomitant]
     Indication: PRODUCT USED FOR UNKNOWN INDICATION
     Dosage: GEBRUIK 10 MG RECTAAL ZO NODIG 3 X PER DAG MISSELIJKHEID
     Route: 050

REACTIONS (6)
  - Laryngospasm [Recovered/Resolved]
  - Muscular weakness [Recovered/Resolved]
  - Presyncope [Recovered/Resolved]
  - Oxygen saturation decreased [Recovered/Resolved]
  - Eyelid ptosis [Recovered/Resolved]
  - Stridor [Recovered/Resolved]

NARRATIVE: CASE EVENT DATE: 20190725
